FAERS Safety Report 23240316 (Version 2)
Quarter: 2023Q4

REPORT INFORMATION
  Report Type: Spontaneous
  Country: YE (occurrence: YE)
  Receive Date: 20231129
  Receipt Date: 20231206
  Transmission Date: 20240110
  Serious: Yes (Hospitalization)
  Sender: FDA-Public Use
  Company Number: YE-BoehringerIngelheim-2023-BI-275370

PATIENT
  Age: 25 Year
  Sex: Female

DRUGS (2)
  1. COMBIVENT [Suspect]
     Active Substance: ALBUTEROL SULFATE\IPRATROPIUM BROMIDE
     Indication: Product used for unknown indication
     Dosage: SINGLE DOSE
     Route: 042
  2. CEFTRIAXONE [Concomitant]
     Active Substance: CEFTRIAXONE\CEFTRIAXONE SODIUM
     Indication: Lower respiratory tract infection
     Route: 042

REACTIONS (5)
  - Urinary retention [Recovered/Resolved]
  - Sinus tachycardia [Recovered/Resolved]
  - Product preparation error [Recovered/Resolved]
  - Toxicity to various agents [Recovered/Resolved]
  - Polyuria [Recovered/Resolved]
